FAERS Safety Report 14093675 (Version 3)
Quarter: 2017Q4

REPORT INFORMATION
  Report Type: Report from Study
  Country: US (occurrence: US)
  Receive Date: 20171016
  Receipt Date: 20171222
  Transmission Date: 20180321
  Serious: Yes (Hospitalization)
  Sender: FDA-Public Use
  Company Number: PHHO2017US014035

PATIENT
  Age: 71 Year
  Sex: Male
  Weight: 78.6 kg

DRUGS (11)
  1. COMPARATOR PACLITAXEL [Suspect]
     Active Substance: PACLITAXEL
     Dosage: 50 MG/M2 IV OVER 1 HOUR ONCE WEEKLY FOR 6-7 WEEKS, 197 MG (TOTAL DOSE)
     Route: 042
     Dates: start: 20161219, end: 20161227
  2. BLINDED NO TREATMENT RECEIVED [Suspect]
     Active Substance: INVESTIGATIONAL PRODUCT
     Indication: THYROID CANCER
     Dosage: 600 MG, QD (2-3 WEEKS)
     Route: 048
     Dates: start: 20161207
  3. BLINDED PACLITAXEL [Suspect]
     Active Substance: PACLITAXEL
     Dosage: 300 MG, QD (FOR 6-7 WEEKS)
     Route: 048
  4. BLINDED PACLITAXEL [Suspect]
     Active Substance: PACLITAXEL
     Dosage: 3000 MG (TOTAL DOSE)
     Route: 048
     Dates: start: 20161219, end: 20161228
  5. BLINDED PAZOPANIB [Suspect]
     Active Substance: PAZOPANIB
     Dosage: 3000 MG (TOTAL DOSE)
     Route: 048
     Dates: start: 20161219, end: 20161228
  6. BLINDED PAZOPANIB [Suspect]
     Active Substance: PAZOPANIB
     Dosage: 300 MG, QD (FOR 6-7 WEEKS)
     Route: 048
  7. COMPARATOR PACLITAXEL [Suspect]
     Active Substance: PACLITAXEL
     Indication: ANAPLASTIC THYROID CANCER
     Dosage: 800 MG/M2, QW (OVER 1 HOUR QWEEK FOR 2-3 WEEKS)
     Route: 042
     Dates: start: 20161207
  8. BLINDED PACLITAXEL [Suspect]
     Active Substance: PACLITAXEL
     Indication: THYROID CANCER
     Dosage: 600 MG, QD (2-3 WEEKS)
     Route: 048
     Dates: start: 20161207
  9. BLINDED NO TREATMENT RECEIVED [Suspect]
     Active Substance: INVESTIGATIONAL PRODUCT
     Dosage: 300 MG, QD (FOR 6-7 WEEKS)
     Route: 048
  10. BLINDED PAZOPANIB [Suspect]
     Active Substance: PAZOPANIB
     Indication: THYROID CANCER
     Dosage: 600 MG, QD (2-3 WEEKS)
     Route: 048
     Dates: start: 20161207
  11. BLINDED NO TREATMENT RECEIVED [Suspect]
     Active Substance: INVESTIGATIONAL PRODUCT
     Dosage: 3000 MG (TOTAL DOSE)
     Route: 048
     Dates: start: 20161219, end: 20161228

REACTIONS (5)
  - Vertigo [Recovering/Resolving]
  - Haemorrhage intracranial [Recovering/Resolving]
  - Dysphagia [Recovering/Resolving]
  - Brain oedema [Recovering/Resolving]
  - Metastases to central nervous system [Recovering/Resolving]

NARRATIVE: CASE EVENT DATE: 20161229
